FAERS Safety Report 16551084 (Version 1)
Quarter: 2019Q3

REPORT INFORMATION
  Report Type: Spontaneous
  Country: US (occurrence: US)
  Receive Date: 20190709
  Receipt Date: 20190709
  Transmission Date: 20191004
  Serious: Yes (Other)
  Sender: FDA-Public Use
  Company Number: None

PATIENT
  Age: 34 Year
  Sex: Male
  Weight: 78.75 kg

DRUGS (1)
  1. EQUATE EYE ALLERGY RELIEF DROPS [Suspect]
     Active Substance: NAPHAZOLINE HYDROCHLORIDE\PHENIRAMINE MALEATE
     Indication: HYPERSENSITIVITY
     Dosage: ?          QUANTITY:1 15ML EYE DROPPER;?
     Route: 047
     Dates: start: 20190501, end: 20190702

REACTIONS (4)
  - Recalled product administered [None]
  - Product formulation issue [None]
  - Product contamination [None]
  - Eye infection [None]

NARRATIVE: CASE EVENT DATE: 20190701
